FAERS Safety Report 21729675 (Version 1)
Quarter: 2022Q4

REPORT INFORMATION
  Report Type: Spontaneous
  Country: US (occurrence: US)
  Receive Date: 20221214
  Receipt Date: 20221214
  Transmission Date: 20230113
  Serious: No
  Sender: FDA-Public Use
  Company Number: US-PERRIGO-22US003336

PATIENT
  Age: 64 Year
  Sex: Female
  Weight: 65.306 kg

DRUGS (1)
  1. TIOCONAZOLE [Suspect]
     Active Substance: TIOCONAZOLE
     Indication: Vulvovaginal mycotic infection
     Dosage: 300 MG, SINGLE
     Route: 067
     Dates: start: 20220125, end: 20220125

REACTIONS (4)
  - Hypersensitivity [Not Recovered/Not Resolved]
  - Skin discolouration [Not Recovered/Not Resolved]
  - Vulvovaginal burning sensation [Recovering/Resolving]
  - Product administration error [Recovered/Resolved]

NARRATIVE: CASE EVENT DATE: 20220125
